FAERS Safety Report 9007821 (Version 1)
Quarter: 2013Q1

REPORT INFORMATION
  Report Type: Spontaneous
  Country: DE (occurrence: DE)
  Receive Date: 20130111
  Receipt Date: 20130111
  Transmission Date: 20140127
  Serious: Yes (Other)
  Sender: FDA-Public Use
  Company Number: DE-AMGEN-DEUSP2012071884

PATIENT
  Age: 76 Year
  Sex: Female
  Weight: 64 kg

DRUGS (4)
  1. PROLIA [Suspect]
     Indication: OSTEOPOROSIS POSTMENOPAUSAL
     Dosage: 60 MG, ONE TIME DOSE
     Dates: start: 20121102
  2. PROLIA [Suspect]
  3. VITAMIN D /00107901/ [Concomitant]
  4. DEKRISTOL [Concomitant]
     Dosage: 1 DF, Q2WK
     Dates: end: 20121120

REACTIONS (37)
  - Hypersensitivity [Unknown]
  - Visual acuity reduced [Unknown]
  - Rheumatic disorder [Unknown]
  - Toothache [Unknown]
  - Headache [Unknown]
  - Myalgia [Unknown]
  - Paraesthesia [Unknown]
  - Neuralgia [Unknown]
  - Abdominal pain [Unknown]
  - Eye pain [Unknown]
  - Conjunctivitis [Unknown]
  - Arthralgia [Unknown]
  - Gingival bleeding [Unknown]
  - Lymphadenopathy [Unknown]
  - Rash macular [Unknown]
  - Gingival pain [Unknown]
  - Pain in jaw [Unknown]
  - Eye inflammation [Unknown]
  - Swollen tongue [Unknown]
  - Dyspnoea [Unknown]
  - Nasopharyngitis [Unknown]
  - Sneezing [Unknown]
  - Feeling cold [Unknown]
  - Mobility decreased [Unknown]
  - Tendon pain [Unknown]
  - Dysphagia [Unknown]
  - Facial pain [Unknown]
  - Joint swelling [Unknown]
  - Cardiac disorder [Unknown]
  - Muscle disorder [Unknown]
  - Musculoskeletal discomfort [Unknown]
  - Bone pain [Unknown]
  - Musculoskeletal pain [Unknown]
  - Local swelling [Unknown]
  - Swelling face [Unknown]
  - Eczema [Unknown]
  - Pain in extremity [Unknown]
